FAERS Safety Report 22651307 (Version 1)
Quarter: 2023Q2

REPORT INFORMATION
  Report Type: Report from Study
  Country: AU (occurrence: AU)
  Receive Date: 20230628
  Receipt Date: 20230628
  Transmission Date: 20230722
  Serious: Yes (Other)
  Sender: FDA-Public Use
  Company Number: AU-JNJFOC-20230653039

PATIENT
  Age: 52 Year
  Sex: Female
  Weight: 100 kg

DRUGS (1)
  1. BORTEZOMIB [Suspect]
     Active Substance: BORTEZOMIB
     Indication: Alveolar proteinosis
     Dosage: UNK
     Route: 065

REACTIONS (2)
  - Alveolar proteinosis [Unknown]
  - Off label use [Unknown]

NARRATIVE: CASE EVENT DATE: 20220510
